FAERS Safety Report 5755136-X (Version None)
Quarter: 2008Q2

REPORT INFORMATION
  Report Type: 
  Country: None (occurrence: None)
  Receive Date: 20080602
  Receipt Date: 20080519
  Transmission Date: 20081010
  Serious: Yes (Hospitalization)
  Sender: FDA-Public Use
  Company Number: US-JNJFOC-20080401510

PATIENT
  Sex: Female
  Weight: 53.98 kg

DRUGS (6)
  1. DURAGESIC-100 [Suspect]
     Indication: DRUG USE FOR UNKNOWN INDICATION
     Route: 062
  2. FENTANYL TRANSDERMAL SYSTEM [Suspect]
     Indication: COMPLEX REGIONAL PAIN SYNDROME
     Dosage: 2 X 25UG/HR PATCHES
     Route: 062
  3. FENTANYL TRANSDERMAL SYSTEM [Suspect]
     Indication: DRUG USE FOR UNKNOWN INDICATION
     Dosage: 2 X 25UG/HR PATCHES
     Route: 062
  4. PERCOCET [Concomitant]
     Indication: PAIN
     Route: 048
  5. SOMA [Concomitant]
     Indication: PAIN
     Route: 048
  6. XANAX [Concomitant]
     Indication: PAIN
     Route: 048

REACTIONS (8)
  - ACTIVITIES OF DAILY LIVING IMPAIRED [None]
  - ANKLE FRACTURE [None]
  - CHEST DISCOMFORT [None]
  - DRUG TOXICITY [None]
  - DYSPNOEA [None]
  - HEADACHE [None]
  - INCORRECT DRUG ADMINISTRATION DURATION [None]
  - UNEVALUABLE EVENT [None]
